FAERS Safety Report 25836371 (Version 1)
Quarter: 2025Q3

REPORT INFORMATION
  Report Type: Spontaneous
  Country: US (occurrence: None)
  Receive Date: 20250922
  Receipt Date: 20250922
  Transmission Date: 20251021
  Serious: No
  Sender: FDA-CTU
  Company Number: None

PATIENT
  Age: 61 Year
  Sex: Female
  Weight: 60.75 kg

DRUGS (8)
  1. ALENDRONATE SODIUM [Suspect]
     Active Substance: ALENDRONATE SODIUM
     Indication: Osteoporosis
     Dosage: OTHER QUANTITY : 1 TABLET(S);?OTHER FREQUENCY : WEEKLY IN THE MORN;?
     Route: 048
     Dates: start: 20250909, end: 20250921
  2. Prolia (past 6 years, last dose 4/30/2025) [Concomitant]
  3. FOSAMAX [Concomitant]
     Active Substance: ALENDRONATE SODIUM
  4. IBUPROFEN [Concomitant]
     Active Substance: IBUPROFEN
  5. ACETAMINOPHEN [Concomitant]
     Active Substance: ACETAMINOPHEN
  6. MULTI-VITAMIN [Concomitant]
     Active Substance: .ALPHA.-TOCOPHEROL ACETATE, DL-\ASCORBIC ACID\CYANOCOBALAMIN\FLUORIDE ION\FOLIC ACID\NIACIN\PYRIDOXI
  7. Ca + Vit D [Concomitant]
  8. Collagen peptides [Concomitant]

REACTIONS (6)
  - Neck pain [None]
  - Arthralgia [None]
  - Pain in extremity [None]
  - Loss of personal independence in daily activities [None]
  - Impaired work ability [None]
  - Insomnia [None]

NARRATIVE: CASE EVENT DATE: 20250909
